FAERS Safety Report 6221481-7 (Version None)
Quarter: 2009Q2

REPORT INFORMATION
  Report Type: 
  Country: None (occurrence: None)
  Receive Date: 20090610
  Receipt Date: 20080529
  Transmission Date: 20091009
  Serious: Yes (Hospitalization)
  Sender: FDA-Public Use
  Company Number: FR-JNJFOC-20080506253

PATIENT
  Age: 80 Year
  Sex: Male

DRUGS (8)
  1. CAELYX [Suspect]
     Indication: KAPOSI'S SARCOMA
     Dosage: RECEIVED 5 CYCLES
     Route: 042
  2. ATARAX [Concomitant]
     Route: 048
  3. CERIS [Concomitant]
     Route: 048
  4. OXYCONTIN [Concomitant]
     Route: 048
  5. TRANDATE [Concomitant]
     Route: 048
  6. SERMION [Concomitant]
     Route: 048
  7. RIVOTRIL [Concomitant]
     Route: 065
  8. ASASANTINE [Concomitant]
     Route: 048

REACTIONS (1)
  - DERMATITIS BULLOUS [None]
